FAERS Safety Report 17016924 (Version 2)
Quarter: 2020Q3

REPORT INFORMATION
  Report Type: Report from Study
  Country: US (occurrence: US)
  Receive Date: 20191111
  Receipt Date: 20200814
  Transmission Date: 20201102
  Serious: Yes (Hospitalization)
  Sender: FDA-Public Use
  Company Number: US-EISAI MEDICAL RESEARCH-EC-2019-064129

PATIENT
  Age: 66 Year
  Sex: Male
  Weight: 63 kg

DRUGS (14)
  1. ELIQUIS [Concomitant]
     Active Substance: APIXABAN
  2. SYNTHROID [Concomitant]
     Active Substance: LEVOTHYROXINE SODIUM
  3. LENVIMA [Suspect]
     Active Substance: LENVATINIB
     Indication: SALIVARY GLAND CANCER
     Route: 048
     Dates: start: 2019, end: 2020
  4. PROAIR HFA [Concomitant]
     Active Substance: ALBUTEROL SULFATE
  5. AMLODIPINE BESYLATE. [Suspect]
     Active Substance: AMLODIPINE BESYLATE
     Indication: HYPERTENSION
  6. ROSUVASTATIN. [Concomitant]
     Active Substance: ROSUVASTATIN
  7. ADVAIR HFA [Concomitant]
     Active Substance: FLUTICASONE PROPIONATE\SALMETEROL XINAFOATE
  8. LAMOTRIGINE. [Concomitant]
     Active Substance: LAMOTRIGINE
  9. METHYLPREDNISOLONE. [Concomitant]
     Active Substance: METHYLPREDNISOLONE
  10. LENVIMA [Suspect]
     Active Substance: LENVATINIB
     Indication: ADENOCARCINOMA
     Route: 048
     Dates: start: 20191020, end: 201911
  11. LOSARTAN. [Concomitant]
     Active Substance: LOSARTAN
  12. MULTIVITAMINS [Concomitant]
     Active Substance: VITAMINS
  13. ELIQUIS [Concomitant]
     Active Substance: APIXABAN
  14. ASPIRIN EC [Concomitant]
     Active Substance: ASPIRIN

REACTIONS (7)
  - Hypotension [Unknown]
  - Infection [Unknown]
  - Decreased appetite [Recovering/Resolving]
  - Malignant neoplasm progression [Not Recovered/Not Resolved]
  - Weight decreased [Recovering/Resolving]
  - Blood pressure increased [Unknown]
  - Heart rate increased [Unknown]

NARRATIVE: CASE EVENT DATE: 2019
